FAERS Safety Report 5808980-4 (Version None)
Quarter: 2008Q3

REPORT INFORMATION
  Report Type: 
  Country: None (occurrence: None)
  Receive Date: 20080710
  Receipt Date: 20080710
  Transmission Date: 20090109
  Serious: Yes (Life-Threatening)
  Sender: FDA-Public Use
  Company Number: None

PATIENT
  Age: 56 Year
  Sex: Female
  Weight: 78.9259 kg

DRUGS (1)
  1. METHIMAZOLE [Suspect]
     Indication: HYPERTHYROIDISM
     Dosage: 1      3 TIMES DAILY
     Dates: start: 20080417, end: 20080524

REACTIONS (4)
  - FEELING COLD [None]
  - MALAISE [None]
  - SHOCK [None]
  - WHITE BLOOD CELL COUNT DECREASED [None]
